FAERS Safety Report 8577448-7 (Version None)
Quarter: 2012Q3

REPORT INFORMATION
  Report Type: 
  Country: None (occurrence: None)
  Receive Date: 20120807
  Receipt Date: 20120801
  Transmission Date: 20120928
  Serious: Yes (Other)
  Sender: FDA-Public Use
  Company Number: GB-PFIZER INC-2012186318

PATIENT
  Age: 65 Year
  Sex: Female
  Weight: 70 kg

DRUGS (6)
  1. RANITIDINE [Suspect]
     Indication: HERNIA
     Dosage: 1 TWICE A DAY
     Route: 048
     Dates: start: 20120502
  2. CITALOPRAM [Suspect]
     Indication: ANXIETY
     Dosage: 1 DF, 1X/DAY
     Route: 048
     Dates: start: 20110823
  3. DOMPERIDONE [Suspect]
     Indication: ACID BASE BALANCE ABNORMAL
     Dosage: 1 DF, 3X/DAY
     Route: 048
     Dates: start: 20120301
  4. ATORVASTATIN [Suspect]
     Indication: HYPERCHOLESTEROLAEMIA
     Dosage: 1 DF, 1X/DAY
     Route: 048
     Dates: start: 20110914
  5. ATENOLOL [Suspect]
     Dosage: 1 DF, 1X/DAY
     Dates: start: 20111115
  6. LYRICA [Suspect]
     Indication: STRESS
     Dosage: 1 DF, 1X/DAY, 1 PER DAY
     Route: 048
     Dates: start: 20110919

REACTIONS (2)
  - BURNING SENSATION [None]
  - GLOSSODYNIA [None]
